FAERS Safety Report 6115718-2 (Version None)
Quarter: 2009Q1

REPORT INFORMATION
  Report Type: 
  Country: None (occurrence: None)
  Receive Date: 20090313
  Receipt Date: 20090312
  Transmission Date: 20090719
  Serious: Yes (Hospitalization)
  Sender: FDA-Public Use
  Company Number: JP-ASTRAZENECA-2008AP08956

PATIENT
  Age: 50 Year
  Sex: Female
  Weight: 73.7 kg

DRUGS (4)
  1. OMEPRAZOLE [Suspect]
     Indication: REFLUX OESOPHAGITIS
     Route: 048
     Dates: start: 20080523, end: 20080705
  2. CONIEL [Concomitant]
     Dates: start: 20060621, end: 20080705
  3. LIPITOR [Concomitant]
     Dates: start: 20070731, end: 20080705
  4. FERRUM [Concomitant]
     Dates: start: 20080617, end: 20080705

REACTIONS (1)
  - CHOLELITHIASIS [None]
